FAERS Safety Report 6516301-7 (Version None)
Quarter: 2009Q4

REPORT INFORMATION
  Report Type: 
  Country: None (occurrence: None)
  Receive Date: 20091223
  Receipt Date: 20091214
  Transmission Date: 20100525
  Serious: Yes (Life-Threatening)
  Sender: FDA-Public Use
  Company Number: CN-JNJFOC-20091204697

PATIENT
  Sex: Female
  Weight: 45 kg

DRUGS (4)
  1. REMICADE [Suspect]
     Route: 042
     Dates: start: 20091012, end: 20091211
  2. REMICADE [Suspect]
     Route: 042
     Dates: start: 20091012, end: 20091211
  3. REMICADE [Suspect]
     Indication: RHEUMATOID ARTHRITIS
     Route: 042
     Dates: start: 20091012, end: 20091211
  4. ACECLOFENAC [Concomitant]
     Indication: ANALGESIC THERAPY
     Dosage: 0.1
     Route: 048

REACTIONS (7)
  - CHILLS [None]
  - DYSPNOEA [None]
  - FLUSHING [None]
  - HYPERTENSION [None]
  - INFUSION RELATED REACTION [None]
  - ORTHOPNOEA [None]
  - THROAT TIGHTNESS [None]
